FAERS Safety Report 8740390 (Version 8)
Quarter: 2015Q2

REPORT INFORMATION
  Report Type: Spontaneous
  Country: US (occurrence: US)
  Receive Date: 20120823
  Receipt Date: 20150421
  Transmission Date: 20150821
  Serious: No
  Sender: FDA-Public Use
  Company Number: US-009507513-1208USA004057

PATIENT
  Sex: Male

DRUGS (2)
  1. PROPECIA [Suspect]
     Active Substance: FINASTERIDE
     Indication: ANDROGENETIC ALOPECIA
     Dosage: 1 MG, QD
     Route: 048
     Dates: start: 20031215, end: 200510
  2. PROPECIA [Suspect]
     Active Substance: FINASTERIDE
     Dosage: 1 MG, QD
     Route: 048
     Dates: start: 2006, end: 2010

REACTIONS (27)
  - Hypothyroidism [Unknown]
  - Umbilical hernia repair [Unknown]
  - Umbilical hernia [Unknown]
  - Skin irritation [Unknown]
  - Eczema [Unknown]
  - Erectile dysfunction [Unknown]
  - Genital rash [Unknown]
  - Depression [Not Recovered/Not Resolved]
  - Dyspepsia [Recovered/Resolved]
  - Upper limb fracture [Unknown]
  - Libido decreased [Unknown]
  - Dermatitis contact [Unknown]
  - Latent tuberculosis [Unknown]
  - Upper respiratory tract infection [Unknown]
  - Seborrhoea [Unknown]
  - Nasopharyngitis [Unknown]
  - Rash [Unknown]
  - Adenotonsillectomy [Unknown]
  - Sexual dysfunction [Unknown]
  - Anxiety [Not Recovered/Not Resolved]
  - Obstructive airways disorder [Unknown]
  - Rash pruritic [Unknown]
  - Oropharyngeal pain [Unknown]
  - Local swelling [Unknown]
  - Tuberculin test positive [Unknown]
  - Gastric disorder [Unknown]
  - Drug hypersensitivity [Unknown]

NARRATIVE: CASE EVENT DATE: 20040218
